FAERS Safety Report 21843356 (Version 1)
Quarter: 2023Q1

REPORT INFORMATION
  Report Type: Spontaneous
  Country: US (occurrence: US)
  Receive Date: 20230110
  Receipt Date: 20230110
  Transmission Date: 20230418
  Serious: No
  Sender: FDA-Public Use
  Company Number: US-PARI RESPIRATORY EQUIPMENT, INC.-2022PAR00074

PATIENT
  Sex: Female
  Weight: 8.617 kg

DRUGS (6)
  1. KITABIS PAK [Suspect]
     Active Substance: TOBRAMYCIN
     Indication: Cystic fibrosis
     Dosage: 300 MG VIA NEBULIZER, 2X/DAY: 28 DAYS ON, 28 DAYS OFF
  2. KITABIS PAK [Suspect]
     Active Substance: TOBRAMYCIN
     Indication: Lung disorder
  3. KITABIS PAK [Suspect]
     Active Substance: TOBRAMYCIN
     Indication: Pseudomonas infection
  4. KITABIS PAK [Suspect]
     Active Substance: TOBRAMYCIN
     Indication: Burkholderia mallei infection
  5. KITABIS PAK [Suspect]
     Active Substance: TOBRAMYCIN
     Indication: Burkholderia pseudomallei infection
  6. ORKAMBI [Concomitant]
     Active Substance: IVACAFTOR\LUMACAFTOR

REACTIONS (2)
  - Infection [Recovered/Resolved]
  - Off label use [Unknown]
